FAERS Safety Report 25234668 (Version 1)
Quarter: 2025Q2

REPORT INFORMATION
  Report Type: Spontaneous
  Country: US (occurrence: None)
  Receive Date: 20250424
  Receipt Date: 20250424
  Transmission Date: 20250716
  Serious: No
  Sender: FDA-CTU
  Company Number: None

PATIENT
  Age: 27 Year
  Sex: Female
  Weight: 42.84 kg

DRUGS (1)
  1. OPILL [Suspect]
     Active Substance: NORGESTREL
     Indication: Contraception
     Dosage: FREQUENCY : DAILY;?
     Route: 048

REACTIONS (10)
  - Body temperature increased [None]
  - Loss of consciousness [None]
  - Seborrhoea [None]
  - Eczema [None]
  - Acne [None]
  - Excessive cerumen production [None]
  - Weight fluctuation [None]
  - Device dislocation [None]
  - Vaginal haemorrhage [None]
  - Pain [None]
